FAERS Safety Report 10197896 (Version 1)
Quarter: 2014Q2

REPORT INFORMATION
  Report Type: Spontaneous
  Country: DE (occurrence: DE)
  Receive Date: 20140527
  Receipt Date: 20140527
  Transmission Date: 20141212
  Serious: Yes (Other)
  Sender: FDA-Public Use
  Company Number: DE-ACTAVIS-2014-11174

PATIENT
  Sex: Male

DRUGS (3)
  1. SERTRALINE (UNKNOWN) [Suspect]
     Indication: FOETAL EXPOSURE DURING PREGNANCY
     Dosage: 150 MG, DAILY
     Route: 064
  2. SERTRALINE (UNKNOWN) [Suspect]
     Indication: EXPOSURE DURING BREAST FEEDING
     Dosage: 150 MG, DAILY
     Route: 048
  3. SERTRALINE (UNKNOWN) [Suspect]
     Indication: MAJOR DEPRESSION

REACTIONS (10)
  - Myoclonus [Recovered/Resolved]
  - Poor sucking reflex [Recovered/Resolved]
  - Hypotonia neonatal [Recovered/Resolved]
  - Chills [Recovered/Resolved]
  - Tremor neonatal [Recovered/Resolved]
  - Frequent bowel movements [Recovered/Resolved]
  - Crying [Recovered/Resolved]
  - Drug withdrawal syndrome neonatal [Recovered/Resolved]
  - Foetal exposure during pregnancy [Recovered/Resolved]
  - Exposure during breast feeding [Recovered/Resolved]
